FAERS Safety Report 8555900 (Version 3)
Quarter: 2012Q4

REPORT INFORMATION
  Report Type: Report from Study
  Country: GB (occurrence: GB)
  Receive Date: 20120510
  Receipt Date: 20121024
  Transmission Date: 20130627
  Serious: Yes (Other)
  Sender: FDA-Public Use
  Company Number: GB-ROCHE-1063680

PATIENT
  Age: 76 Year
  Sex: Male

DRUGS (2)
  1. RITUXIMAB [Suspect]
     Indication: RHEUMATOID ARTHRITIS
     Route: 065
     Dates: start: 20080808
  2. METHOTREXATE [Concomitant]

REACTIONS (2)
  - Ear neoplasm malignant [Recovered/Resolved]
  - Skin cancer [Unknown]
